FAERS Safety Report 21831907 (Version 1)
Quarter: 2023Q1

REPORT INFORMATION
  Report Type: Spontaneous
  Country: US (occurrence: None)
  Receive Date: 20230106
  Receipt Date: 20230106
  Transmission Date: 20230417
  Serious: Yes (Hospitalization)
  Sender: FDA-Public Use
  Company Number: None

PATIENT
  Age: 78 Year
  Sex: Male
  Weight: 81.65 kg

DRUGS (4)
  1. ABIRATERONE [Suspect]
     Active Substance: ABIRATERONE
     Indication: Prostate cancer
     Dosage: FREQUENCY : DAILY;?
     Route: 048
     Dates: start: 201808
  2. GABAPENTIN [Concomitant]
     Active Substance: GABAPENTIN
  3. LUPRON [Concomitant]
     Active Substance: LEUPROLIDE ACETATE
  4. MINERALS [Concomitant]
     Active Substance: MINERALS

REACTIONS (4)
  - Cardiac failure congestive [None]
  - Atrial fibrillation [None]
  - Renal disorder [None]
  - Liver disorder [None]

NARRATIVE: CASE EVENT DATE: 20221219
